FAERS Safety Report 9057227 (Version 1)
Quarter: 2013Q1

REPORT INFORMATION
  Report Type: Spontaneous
  Country: US (occurrence: US)
  Receive Date: 20130131
  Receipt Date: 20130131
  Transmission Date: 20140127
  Serious: Yes (Hospitalization)
  Sender: FDA-Public Use
  Company Number: US-GLAXOSMITHKLINE-A1009489A

PATIENT
  Age: 71 Year
  Sex: Female

DRUGS (2)
  1. ROPINIROLE [Suspect]
     Indication: DYSTONIA
     Route: 048
     Dates: start: 20090101, end: 20090110
  2. NO CONCURRENT MEDICATION [Concomitant]

REACTIONS (7)
  - Dementia Alzheimer^s type [Recovering/Resolving]
  - Abnormal behaviour [Recovering/Resolving]
  - Hypersomnia [Recovering/Resolving]
  - Hallucination [Recovering/Resolving]
  - Patient restraint [Unknown]
  - Memory impairment [Not Recovered/Not Resolved]
  - Amnesia [Not Recovered/Not Resolved]
